FAERS Safety Report 5017594-8 (Version None)
Quarter: 2006Q2

REPORT INFORMATION
  Report Type: 
  Country: None (occurrence: None)
  Receive Date: 20060601
  Receipt Date: 20060601
  Transmission Date: 20061013
  Serious: Yes (Hospitalization)
  Sender: FDA-Public Use
  Company Number: None

PATIENT
  Age: 46 Year
  Sex: Female
  Weight: 72 kg

DRUGS (3)
  1. QUETIAPINE FUMARATE [Suspect]
     Indication: SCHIZOPHRENIA
     Dosage: 200MG PO QAM, 400MG PM
     Route: 048
  2. BUPROPION HCL [Suspect]
     Indication: DEPRESSION
     Dosage: 150MG BID
  3. TRAZODONE HCL [Suspect]
     Indication: INSOMNIA
     Dosage: 100MG HS

REACTIONS (4)
  - ABDOMINAL DISCOMFORT [None]
  - HALLUCINATION, AUDITORY [None]
  - INSOMNIA [None]
  - URINARY RETENTION [None]
